FAERS Safety Report 9271690 (Version 2)
Quarter: 2013Q2

REPORT INFORMATION
  Report Type: Spontaneous
  Country: FR (occurrence: FR)
  Receive Date: 20130506
  Receipt Date: 20130605
  Transmission Date: 20140414
  Serious: Yes (Disabling)
  Sender: FDA-Public Use
  Company Number: FR-PFIZER INC-2013138696

PATIENT
  Age: 75 Year
  Sex: Female

DRUGS (5)
  1. CORDARONE [Suspect]
     Indication: ARRHYTHMIA
     Dosage: 0.5 DF, 1X/DAY
     Route: 048
     Dates: start: 201107
  2. QUESTRAN [Suspect]
     Indication: HYPERCHOLESTEROLAEMIA
     Dosage: 1 DF, 1X/DAY
     Route: 048
     Dates: start: 201301, end: 201301
  3. NAFTIDROFURYL [Concomitant]
     Dosage: UNK
  4. ISOPTINE [Concomitant]
     Dosage: UNK
  5. DEDROGYL [Concomitant]
     Dosage: UNK

REACTIONS (2)
  - Gait disturbance [Not Recovered/Not Resolved]
  - Pain [Not Recovered/Not Resolved]
